FAERS Safety Report 25121644 (Version 1)
Quarter: 2025Q1

REPORT INFORMATION
  Report Type: Spontaneous
  Country: SY (occurrence: SY)
  Receive Date: 20250326
  Receipt Date: 20250326
  Transmission Date: 20250408
  Serious: No
  Sender: ALKEM
  Company Number: SY-ALKEM LABORATORIES LIMITED-SY-ALKEM-2024-23436

PATIENT
  Age: 18 Year
  Sex: Female

DRUGS (3)
  1. COLCHICINE [Suspect]
     Active Substance: COLCHICINE
     Indication: Acquired blaschkoid dermatitis
     Route: 065
  2. CALCIPOTRIENE [Suspect]
     Active Substance: CALCIPOTRIENE
     Indication: Acquired blaschkoid dermatitis
     Dosage: UNK (TABLETS)
     Route: 065
  3. VITAMIN K [Suspect]
     Active Substance: PHYTONADIONE
     Indication: Acquired blaschkoid dermatitis
     Route: 065

REACTIONS (1)
  - Therapy partial responder [Unknown]
